FAERS Safety Report 9677843 (Version 2)
Quarter: 2013Q4

REPORT INFORMATION
  Report Type: Spontaneous
  Country: ZA (occurrence: ZA)
  Receive Date: 20131108
  Receipt Date: 20131113
  Transmission Date: 20140711
  Serious: Yes (Hospitalization)
  Sender: FDA-Public Use
  Company Number: ZA-JNJFOC-20131102631

PATIENT
  Age: 39 Year
  Sex: Male

DRUGS (8)
  1. XARELTO [Suspect]
     Indication: KNEE OPERATION
     Route: 048
     Dates: start: 20131018
  2. XARELTO [Suspect]
     Indication: THROMBOSIS PROPHYLAXIS
     Route: 048
     Dates: start: 20131018
  3. TRAMACET [Concomitant]
     Route: 065
  4. OXYNORM [Concomitant]
     Route: 065
  5. CLEXANE [Concomitant]
     Route: 058
  6. WARFARIN [Concomitant]
     Route: 065
  7. PERFALGAN [Concomitant]
     Route: 065
  8. TRAMAL [Concomitant]
     Route: 065

REACTIONS (2)
  - Pulmonary embolism [Unknown]
  - Arthralgia [Unknown]
